FAERS Safety Report 25533102 (Version 1)
Quarter: 2025Q3

REPORT INFORMATION
  Report Type: Spontaneous
  Country: US (occurrence: US)
  Receive Date: 20250709
  Receipt Date: 20250709
  Transmission Date: 20251020
  Serious: Yes (Other)
  Sender: ORGANON
  Company Number: US-ORGANON-O2507USA000430

PATIENT
  Age: 59 Year
  Sex: Female
  Weight: 86.168 kg

DRUGS (6)
  1. LOSARTAN POTASSIUM [Suspect]
     Active Substance: LOSARTAN POTASSIUM
     Indication: Supraventricular tachycardia
     Dosage: 50MG TWICE DAILY
     Route: 048
     Dates: start: 202301
  2. PLAVIX [Concomitant]
     Active Substance: CLOPIDOGREL BISULFATE
  3. FUROSEMIDE [Concomitant]
     Active Substance: FUROSEMIDE
  4. CARVEDILOL [Concomitant]
     Active Substance: CARVEDILOL
  5. ATORVASTATIN [Concomitant]
     Active Substance: ATORVASTATIN
  6. POTASSIUM [Concomitant]
     Active Substance: POTASSIUM

REACTIONS (5)
  - Cerebrovascular accident [Recovered/Resolved]
  - Balance disorder [Unknown]
  - Hypoaesthesia [Not Recovered/Not Resolved]
  - Hypoaesthesia oral [Not Recovered/Not Resolved]
  - Product use in unapproved indication [Unknown]

NARRATIVE: CASE EVENT DATE: 20230101
